FAERS Safety Report 7620848-X (Version None)
Quarter: 2011Q3

REPORT INFORMATION
  Report Type: 
  Country: None (occurrence: None)
  Receive Date: 20110719
  Receipt Date: 20110714
  Transmission Date: 20111222
  Serious: Yes (Other)
  Sender: FDA-Public Use
  Company Number: CHPA2011US09366

PATIENT
  Age: 45 Year
  Sex: Female

DRUGS (2)
  1. PHENYLEPHRINE HCL [Suspect]
     Indication: NASOPHARYNGITIS
     Dosage: UNK, UNK
     Route: 045
  2. PHENYLEPHRINE HCL [Suspect]
     Indication: NASAL CONGESTION
     Dosage: 1 OR 2 SQUIRTS EVERY 2 TO 3 HOURS
     Route: 045

REACTIONS (6)
  - NASAL CONGESTION [None]
  - REBOUND EFFECT [None]
  - CHOKING SENSATION [None]
  - DRUG DEPENDENCE [None]
  - INAPPROPRIATE SCHEDULE OF DRUG ADMINISTRATION [None]
  - INCORRECT DRUG ADMINISTRATION DURATION [None]
